FAERS Safety Report 12556064 (Version 1)
Quarter: 2016Q3

REPORT INFORMATION
  Report Type: Other
  Country: US (occurrence: US)
  Receive Date: 20160714
  Receipt Date: 20160714
  Transmission Date: 20161109
  Serious: Yes (Disabling)
  Sender: FDA-Public Use
  Company Number: US-ACORDA-ACO_125938_2016

PATIENT
  Age: 47 Year
  Sex: Female

DRUGS (1)
  1. AMPYRA [Suspect]
     Active Substance: DALFAMPRIDINE
     Indication: PRODUCT USED FOR UNKNOWN INDICATION
     Dosage: UNK
     Route: 065

REACTIONS (9)
  - Hypoaesthesia [Unknown]
  - Periarthritis [Unknown]
  - Central nervous system lesion [Unknown]
  - Cognitive disorder [Unknown]
  - Muscular weakness [Unknown]
  - Fall [Unknown]
  - Impaired work ability [Unknown]
  - Multiple sclerosis relapse [Unknown]
  - JC virus test positive [Unknown]

NARRATIVE: CASE EVENT DATE: 201510
